FAERS Safety Report 9034960 (Version 1)
Quarter: 2013Q1

REPORT INFORMATION
  Report Type: Report from Study
  Country: US (occurrence: US)
  Receive Date: 20130129
  Receipt Date: 20130129
  Transmission Date: 20140127
  Serious: No
  Sender: FDA-Public Use
  Company Number: US-ABBOTT-12P-163-0893109-00

PATIENT
  Age: 53 Year
  Sex: Female

DRUGS (6)
  1. HUMIRA 40 MG/0.8 ML PEN [Suspect]
     Indication: PSORIASIS
     Dates: start: 201009
  2. WELLBUTRIN XL [Concomitant]
     Indication: DEPRESSION
     Dosage: 300 MG DAILY
  3. BENICAR [Concomitant]
     Indication: BLOOD PRESSURE ABNORMAL
     Dosage: 40 MG DAILY
  4. TEKTURNA HCT [Concomitant]
     Indication: BLOOD PRESSURE ABNORMAL
     Dosage: 150-12.5MG DAILY
  5. FUROSEMIDE [Concomitant]
     Indication: DIURETIC THERAPY
     Dosage: 20 MG DAILY
  6. ADDERALL XL [Concomitant]
     Indication: PRODUCT USED FOR UNKNOWN INDICATION
     Dosage: 15 MG DAILY

REACTIONS (1)
  - Psoriasis [Not Recovered/Not Resolved]
